FAERS Safety Report 5312392-X (Version None)
Quarter: 2007Q2

REPORT INFORMATION
  Report Type: 
  Country: None (occurrence: None)
  Receive Date: 20070430
  Receipt Date: 20061120
  Transmission Date: 20071010
  Serious: No
  Sender: FDA-Public Use
  Company Number: 2006UW25706

PATIENT
  Age: 71 Year
  Sex: Male
  Weight: 98.9 kg

DRUGS (3)
  1. NEXIUM [Suspect]
     Indication: OESOPHAGITIS
     Route: 048
     Dates: start: 20060101
  2. NEXIUM [Suspect]
     Indication: HIATUS HERNIA
     Route: 048
     Dates: start: 20060101
  3. PLAVIX [Concomitant]

REACTIONS (2)
  - MUSCLE STRAIN [None]
  - MYALGIA [None]
